FAERS Safety Report 5002167-3 (Version None)
Quarter: 2006Q2

REPORT INFORMATION
  Report Type: 
  Country: None (occurrence: None)
  Receive Date: 20060515
  Receipt Date: 20060427
  Transmission Date: 20061013
  Serious: Yes (Hospitalization)
  Sender: FDA-Public Use
  Company Number: DE-SANOFI-SYNTHELABO-A04200600505

PATIENT
  Sex: Female

DRUGS (1)
  1. ELOXATIN [Suspect]
     Indication: COLORECTAL CANCER
     Route: 041
     Dates: start: 20060401, end: 20060401

REACTIONS (3)
  - BACK PAIN [None]
  - COOMBS TEST POSITIVE [None]
  - RENAL FAILURE [None]
